FAERS Safety Report 13309394 (Version 2)
Quarter: 2019Q4

REPORT INFORMATION
  Report Type: Spontaneous
  Country: US (occurrence: US)
  Receive Date: 20170309
  Receipt Date: 20191226
  Transmission Date: 20200122
  Serious: Yes (Death, Life-Threatening, Hospitalization, Other)
  Sender: FDA-Public Use
  Company Number: US-BAYER-2016-242233

PATIENT
  Age: 77 Year
  Sex: Male

DRUGS (5)
  1. XARELTO [Suspect]
     Active Substance: RIVAROXABAN
     Indication: CEREBROVASCULAR ACCIDENT PROPHYLAXIS
     Dosage: 15 MG, BID
     Route: 048
     Dates: start: 20150119, end: 201505
  2. ASPIRIN (CARDIO) [Suspect]
     Active Substance: ASPIRIN
     Indication: PRODUCT USED FOR UNKNOWN INDICATION
     Dosage: 81 MG, QD
     Route: 048
     Dates: start: 201501
  3. XARELTO [Interacting]
     Active Substance: RIVAROXABAN
     Indication: ATRIAL FIBRILLATION
     Dosage: 20 MG, QD
     Route: 048
     Dates: start: 201311, end: 20150105
  4. XARELTO [Suspect]
     Active Substance: RIVAROXABAN
     Indication: DEEP VEIN THROMBOSIS
     Dosage: UNK
  5. ASPIRIN (CARDIO) [Interacting]
     Active Substance: ASPIRIN
     Indication: PRODUCT USED FOR UNKNOWN INDICATION
     Dosage: 81 MG, QD
     Route: 048
     Dates: end: 20150106

REACTIONS (9)
  - Femur fracture [Recovering/Resolving]
  - Fall [Unknown]
  - Epistaxis [Recovering/Resolving]
  - Acute kidney injury [Recovering/Resolving]
  - Post procedural haemorrhage [Recovered/Resolved]
  - Haematochezia [Recovered/Resolved]
  - Subgaleal haematoma [Recovering/Resolving]
  - Haematuria [Recovering/Resolving]
  - Facial bones fracture [Recovering/Resolving]

NARRATIVE: CASE EVENT DATE: 20140803
